FAERS Safety Report 6613052 (Version 3)
Quarter: 2013Q2

REPORT INFORMATION
  Report Type: Spontaneous
  Country: US (occurrence: US)
  Receive Date: 20080411
  Receipt Date: 20130604
  Transmission Date: 20140414
  Serious: Yes (Other)
  Sender: FDA-Public Use
  Company Number: US-PFIZER INC-2008009872

PATIENT
  Sex: Female

DRUGS (13)
  1. CHANTIX TABLETS [Suspect]
     Indication: SMOKING CESSATION THERAPY
     Dates: start: 200711
  2. CHANTIX TABLETS [Interacting]
     Dosage: UNK, 1X/DAY IN THE MORNING
  3. IBUPROFEN [Interacting]
     Dosage: 200 MG, UNK
  4. PERCOCET [Interacting]
     Indication: ANALGESIC THERAPY
     Dosage: 3 DOSE (S)
  5. PERCOCET [Interacting]
     Indication: PAIN
  6. DARVOCET [Interacting]
     Indication: ANALGESIC THERAPY
     Dosage: 2 DOSE (S)
  7. DARVOCET [Interacting]
     Indication: PAIN
  8. VICODIN [Interacting]
     Indication: ANALGESIC THERAPY
     Dosage: UNK
  9. VICODIN [Interacting]
     Indication: PAIN
  10. FLEXERIL [Interacting]
     Indication: ANALGESIC THERAPY
     Dosage: 1 DOSE (S)
  11. FLEXERIL [Interacting]
     Indication: PAIN
  12. EXTRA STRENGTH TYLENOL PM [Suspect]
     Dosage: UNK
  13. TYLENOL PM [Concomitant]
     Indication: ANALGESIC THERAPY
     Dosage: UNK

REACTIONS (7)
  - Drug administration error [Unknown]
  - Procedural complication [Unknown]
  - Endodontic procedure [Unknown]
  - Artificial crown procedure [Recovered/Resolved]
  - Toothache [Recovered/Resolved]
  - Drug interaction [Recovered/Resolved]
  - Drug ineffective [Unknown]
